FAERS Safety Report 4920887-3 (Version None)
Quarter: 2006Q1

REPORT INFORMATION
  Report Type: 
  Country: None (occurrence: None)
  Receive Date: 20060223
  Receipt Date: 20050218
  Transmission Date: 20060701
  Serious: Yes (Hospitalization)
  Sender: FDA-Public Use
  Company Number: US-MERCK-0502USA02731

PATIENT
  Age: 73 Year
  Sex: Female
  Weight: 106 kg

DRUGS (7)
  1. VIOXX [Suspect]
     Indication: NECK PAIN
     Route: 048
     Dates: start: 20000307, end: 20041001
  2. DESIPRAMINE HYDROCHLORIDE [Concomitant]
     Route: 065
  3. TIZANIDINE HYDROCHLORIDE [Concomitant]
     Route: 065
  4. ZOCOR [Concomitant]
     Route: 065
  5. NOVOLIN N [Concomitant]
     Route: 065
  6. DICLOFENAC [Concomitant]
     Route: 065
  7. GLYBURIDE [Concomitant]
     Route: 065

REACTIONS (2)
  - CARDIAC DISORDER [None]
  - MYOCARDIAL INFARCTION [None]
